FAERS Safety Report 8087827-2 (Version None)
Quarter: 2012Q1

REPORT INFORMATION
  Report Type: 
  Country: None (occurrence: None)
  Receive Date: 20120128
  Receipt Date: 20110427
  Transmission Date: 20120608
  Serious: No
  Sender: FDA-Public Use
  Company Number: US-ABBOTT-11P-163-0723037-00

PATIENT
  Sex: Female

DRUGS (1)
  1. HUMIRA [Suspect]
     Indication: PSORIATIC ARTHROPATHY
     Dosage: ONE DOSE SO FAR
     Route: 058
     Dates: start: 20110420

REACTIONS (3)
  - HOT FLUSH [None]
  - ANXIETY [None]
  - INSOMNIA [None]
